FAERS Safety Report 8826052 (Version 2)
Quarter: 2013Q1

REPORT INFORMATION
  Report Type: Report from Study
  Country: NL (occurrence: NL)
  Receive Date: 20121005
  Receipt Date: 20130306
  Transmission Date: 20140127
  Serious: Yes (Death, Hospitalization)
  Sender: FDA-Public Use
  Company Number: NL-ROCHE-1132554

PATIENT
  Age: 70 Year
  Sex: Female

DRUGS (8)
  1. BEVACIZUMAB [Suspect]
     Indication: BREAST CANCER METASTATIC
     Route: 042
     Dates: start: 20120313, end: 20120821
  2. PACLITAXEL [Suspect]
     Indication: BREAST CANCER METASTATIC
     Route: 042
     Dates: start: 20120313, end: 20120619
  3. CLONIDINE [Concomitant]
     Route: 065
     Dates: start: 20120223, end: 20120913
  4. LOSARTAN [Concomitant]
     Route: 065
     Dates: start: 20120907, end: 20120913
  5. HYDROCHLOROTHIAZIDE [Concomitant]
  6. AMLODIPINE [Concomitant]
     Route: 065
  7. METOCLOPRAMIDE [Concomitant]
     Route: 065
     Dates: start: 20120302, end: 20120913
  8. COMBIVENT [Concomitant]
     Route: 065
     Dates: start: 20120223, end: 20120913

REACTIONS (4)
  - Lymphangiosis carcinomatosa [Fatal]
  - Pyrexia [Recovered/Resolved]
  - Dehydration [Recovered/Resolved]
  - Viral infection [Recovered/Resolved]
